FAERS Safety Report 16685937 (Version 1)
Quarter: 2019Q3

REPORT INFORMATION
  Report Type: Spontaneous
  Country: US (occurrence: US)
  Receive Date: 20190809
  Receipt Date: 20190809
  Transmission Date: 20191004
  Serious: No
  Sender: FDA-Public Use
  Company Number: US-GLAXOSMITHKLINE-US2019141240

PATIENT

DRUGS (2)
  1. IBUPROFEN. [Suspect]
     Active Substance: IBUPROFEN
     Indication: HANGOVER
     Dosage: 2 DF, UNK
  2. EXCEDRIN [Suspect]
     Active Substance: ACETAMINOPHEN\ASPIRIN\CAFFEINE
     Indication: HANGOVER
     Dosage: 2 DF, UNK

REACTIONS (3)
  - Product use in unapproved indication [Unknown]
  - Labelled drug-drug interaction medication error [Unknown]
  - Labelled drug-food interaction medication error [Unknown]
